FAERS Safety Report 5718718-7 (Version None)
Quarter: 2008Q2

REPORT INFORMATION
  Report Type: 
  Country: None (occurrence: None)
  Receive Date: 20080425
  Receipt Date: 20080414
  Transmission Date: 20081010
  Serious: Yes (Other)
  Sender: FDA-Public Use
  Company Number: US-PFIZER INC-2008033838

PATIENT
  Sex: Female
  Weight: 72.1 kg

DRUGS (7)
  1. LYRICA [Suspect]
     Indication: FIBROMYALGIA
     Dates: start: 20080101, end: 20080101
  2. ULTRAM [Concomitant]
  3. SOMA [Concomitant]
  4. CYMBALTA [Concomitant]
  5. ESTRACE [Concomitant]
  6. KLONOPIN [Concomitant]
  7. VITAMIN CAP [Concomitant]

REACTIONS (3)
  - PHARYNGEAL OEDEMA [None]
  - RESPIRATORY DISTRESS [None]
  - SWOLLEN TONGUE [None]
